FAERS Safety Report 4733235-9 (Version None)
Quarter: 2005Q3

REPORT INFORMATION
  Report Type: 
  Country: None (occurrence: None)
  Receive Date: 20050803
  Receipt Date: 20050719
  Transmission Date: 20060218
  Serious: Yes (Other)
  Sender: FDA-Public Use
  Company Number: PHBS2005BR10467

PATIENT
  Age: 23 Year
  Sex: Female
  Weight: 54 kg

DRUGS (1)
  1. PARLODEL [Suspect]
     Indication: SUPPRESSED LACTATION
     Dosage: 2.5 MG, QD
     Route: 048
     Dates: start: 20050705, end: 20050714

REACTIONS (4)
  - ABDOMINAL PAIN UPPER [None]
  - HAEMATEMESIS [None]
  - HYPOMENORRHOEA [None]
  - MENSTRUAL DISORDER [None]
